FAERS Safety Report 14028784 (Version 2)
Quarter: 2019Q2

REPORT INFORMATION
  Report Type: Spontaneous
  Country: US (occurrence: US)
  Receive Date: 20170930
  Receipt Date: 20190531
  Transmission Date: 20190711
  Serious: No
  Sender: FDA-Public Use
  Company Number: US-SA-2017SA102770

PATIENT
  Age: 56 Year
  Sex: Female

DRUGS (2)
  1. AUBAGIO [Suspect]
     Active Substance: TERIFLUNOMIDE
     Dosage: UNK
     Route: 048
  2. AUBAGIO [Suspect]
     Active Substance: TERIFLUNOMIDE
     Dosage: UNK UNK,UNK
     Dates: start: 201806

REACTIONS (2)
  - Product dose omission [Unknown]
  - Constipation [Unknown]

NARRATIVE: CASE EVENT DATE: 20170516
